FAERS Safety Report 15400913 (Version 1)
Quarter: 2018Q3

REPORT INFORMATION
  Report Type: Spontaneous
  Country: US (occurrence: US)
  Receive Date: 20180913
  Receipt Date: 20180913
  Transmission Date: 20181010
  Serious: Yes (Life-Threatening, Hospitalization)
  Sender: FDA-Public Use
  Company Number: None

PATIENT
  Age: 47 Year
  Sex: Female

DRUGS (2)
  1. CIPRO [Suspect]
     Active Substance: CIPROFLOXACIN HYDROCHLORIDE
     Indication: DIVERTICULITIS
     Route: 048
     Dates: start: 20180426, end: 20180506
  2. XANAX [Concomitant]
     Active Substance: ALPRAZOLAM

REACTIONS (4)
  - Clostridium difficile infection [None]
  - Colitis ulcerative [None]
  - Diarrhoea [None]
  - Weight decreased [None]

NARRATIVE: CASE EVENT DATE: 20180509
